FAERS Safety Report 8459172-4 (Version None)
Quarter: 2012Q2

REPORT INFORMATION
  Report Type: 
  Country: None (occurrence: None)
  Receive Date: 20120622
  Receipt Date: 20120608
  Transmission Date: 20120825
  Serious: Yes (Other)
  Sender: FDA-Public Use
  Company Number: CA-ROCHE-1079039

PATIENT
  Sex: Male

DRUGS (5)
  1. CARDURA [Suspect]
     Indication: BENIGN PROSTATIC HYPERPLASIA
     Dosage: FOR 10 DAYS
  2. CORTISONE ACETATE [Concomitant]
     Dosage: FOR 7 DYAS
  3. VENTOLIN [Concomitant]
  4. XOLAIR [Suspect]
     Indication: ASTHMA
     Route: 058
     Dates: start: 20091210
  5. PREDNISONE TAB [Concomitant]

REACTIONS (13)
  - PAINFUL RESPIRATION [None]
  - BENIGN PROSTATIC HYPERPLASIA [None]
  - ASTHMA [None]
  - LIMB INJURY [None]
  - PYREXIA [None]
  - INFLUENZA [None]
  - ORAL DISCHARGE [None]
  - BLOOD PRESSURE SYSTOLIC INCREASED [None]
  - COUGH [None]
  - PRODUCTIVE COUGH [None]
  - ARTHRALGIA [None]
  - WHEEZING [None]
  - VERTIGO [None]
